FAERS Safety Report 4293885-3 (Version None)
Quarter: 2004Q1

REPORT INFORMATION
  Report Type: 
  Country: None (occurrence: None)
  Receive Date: 20040211
  Receipt Date: 20040129
  Transmission Date: 20041129
  Serious: Yes (Other)
  Sender: FDA-Public Use
  Company Number: 2004006548

PATIENT
  Age: 58 Year
  Sex: Male
  Weight: 113 kg

DRUGS (5)
  1. DOXAZOSIN MESYLATE [Suspect]
     Indication: HYPERTENSION
     Dosage: ORAL
     Route: 048
     Dates: start: 20020702, end: 20020709
  2. LACIDIPINE (LACIDIPINE) [Concomitant]
  3. RAMIPRIL [Concomitant]
  4. AMLODIPINE BESYLATE [Concomitant]
  5. ALL OTHER THERAPEUTIC PRODUCTS [Concomitant]

REACTIONS (1)
  - PENILE SIZE REDUCED [None]
